FAERS Safety Report 4906162-1 (Version None)
Quarter: 2006Q1

REPORT INFORMATION
  Report Type: 
  Country: None (occurrence: None)
  Receive Date: 20060209
  Receipt Date: 20060119
  Transmission Date: 20060701
  Serious: Yes (Death)
  Sender: FDA-Public Use
  Company Number: PHEH2006US01201

PATIENT
  Age: 72 Year
  Sex: Female

DRUGS (2)
  1. FORADIL [Suspect]
     Dosage: 12MCG, BID
  2. NASONEX [Suspect]
     Dosage: 50MCG, UNK
     Route: 045

REACTIONS (1)
  - LUNG NEOPLASM MALIGNANT [None]
